FAERS Safety Report 5351491-3 (Version None)
Quarter: 2007Q2

REPORT INFORMATION
  Report Type: 
  Country: None (occurrence: None)
  Receive Date: 20070521
  Receipt Date: 20070214
  Transmission Date: 20071010
  Serious: No
  Sender: FDA-Public Use
  Company Number: WAES 0702USA02938

PATIENT
  Age: 53 Year
  Sex: Female
  Weight: 97.5234 kg

DRUGS (7)
  1. JANUVIA [Suspect]
     Indication: DIABETES MELLITUS
     Dosage: 100 MG/DAILY/PO
     Route: 048
     Dates: start: 20061122, end: 20070201
  2. AVANDIA [Concomitant]
  3. FORTAMET [Concomitant]
  4. INDERAL LA [Concomitant]
  5. LEVAQUIN [Concomitant]
  6. METFORMIN [Concomitant]
  7. STATIN [Concomitant]

REACTIONS (1)
  - CONTUSION [None]
